FAERS Safety Report 13488069 (Version 2)
Quarter: 2017Q2

REPORT INFORMATION
  Report Type: Spontaneous
  Country: IT (occurrence: IT)
  Receive Date: 20170426
  Receipt Date: 20170519
  Transmission Date: 20170830
  Serious: Yes (Other)
  Sender: FDA-Public Use
  Company Number: IT-EMD SERONO-8155251

PATIENT
  Age: 35 Year
  Sex: Female

DRUGS (2)
  1. REBIF [Suspect]
     Active Substance: INTERFERON BETA-1A
     Indication: MULTIPLE SCLEROSIS
     Route: 058
     Dates: start: 20161025, end: 20170118
  2. REBIF [Suspect]
     Active Substance: INTERFERON BETA-1A
     Dates: start: 20170118, end: 20170410

REACTIONS (6)
  - Paraesthesia [Unknown]
  - Muscle rigidity [Unknown]
  - Nausea [Unknown]
  - Malaise [Unknown]
  - Vomiting [Unknown]
  - Transaminases increased [Unknown]

NARRATIVE: CASE EVENT DATE: 20161123
